FAERS Safety Report 7344827-5 (Version None)
Quarter: 2011Q1

REPORT INFORMATION
  Report Type: 
  Country: None (occurrence: None)
  Receive Date: 20110310
  Receipt Date: 20110302
  Transmission Date: 20110831
  Serious: Yes (Hospitalization, Other)
  Sender: FDA-Public Use
  Company Number: DE-BAXTER-2010BH030518

PATIENT
  Age: 63 Year
  Sex: Male
  Weight: 125 kg

DRUGS (11)
  1. PHYSIOSOL IN PLASTIC CONTAINER [Suspect]
     Route: 033
     Dates: start: 20101220, end: 20101220
  2. XIPAMIDE [Concomitant]
     Indication: PRODUCT USED FOR UNKNOWN INDICATION
     Route: 048
  3. PANTOZOL [Concomitant]
     Indication: PRODUCT USED FOR UNKNOWN INDICATION
     Route: 048
  4. EXTRANEAL [Suspect]
     Route: 033
  5. EXTRANEAL [Suspect]
     Route: 033
  6. PHYSIOSOL IN PLASTIC CONTAINER [Suspect]
     Route: 033
  7. EXTRANEAL [Suspect]
     Indication: PERITONEAL DIALYSIS
     Route: 033
     Dates: start: 20101220
  8. RENAGEL [Concomitant]
     Indication: PRODUCT USED FOR UNKNOWN INDICATION
     Route: 048
  9. EXTRANEAL [Suspect]
     Route: 033
  10. PHYSIOSOL IN PLASTIC CONTAINER [Suspect]
     Indication: PERITONEAL DIALYSIS
     Route: 033
     Dates: start: 20101221
  11. TORASEMIDE [Concomitant]
     Indication: PRODUCT USED FOR UNKNOWN INDICATION
     Route: 048

REACTIONS (4)
  - HYPOTENSION [None]
  - DIVERTICULITIS [None]
  - PERITONITIS [None]
  - ABDOMINAL ABSCESS [None]
